FAERS Safety Report 23030699 (Version 1)
Quarter: 2023Q4

REPORT INFORMATION
  Report Type: Spontaneous
  Country: AU (occurrence: AU)
  Receive Date: 20231005
  Receipt Date: 20231005
  Transmission Date: 20240110
  Serious: Yes (Other)
  Sender: FDA-Public Use
  Company Number: AU-NOVITIUMPHARMA-2023AUNVP01736

PATIENT
  Age: 63 Year
  Sex: Male

DRUGS (5)
  1. DAPSONE [Suspect]
     Active Substance: DAPSONE
     Indication: VEXAS syndrome
  2. PREDNISOLONE [Concomitant]
     Active Substance: PREDNISOLONE
     Indication: VEXAS syndrome
     Dosage: 0.5 MG/KG/DAY
  3. PREDNISOLONE [Concomitant]
     Active Substance: PREDNISOLONE
  4. PREDNISOLONE [Concomitant]
     Active Substance: PREDNISOLONE
     Dosage: INTERMITTENT HIGHER DOSES
  5. COLCHICINE [Concomitant]
     Active Substance: COLCHICINE
     Indication: VEXAS syndrome

REACTIONS (1)
  - Haemolysis [Unknown]
